FAERS Safety Report 24042329 (Version 1)
Quarter: 2024Q3

REPORT INFORMATION
  Report Type: Spontaneous
  Country: HR (occurrence: HR)
  Receive Date: 20240702
  Receipt Date: 20240702
  Transmission Date: 20241017
  Serious: Yes (Other)
  Sender: SANDOZ
  Company Number: None

PATIENT
  Age: 65 Year
  Sex: Male

DRUGS (10)
  1. ALLOPURINOL [Suspect]
     Active Substance: ALLOPURINOL
     Indication: Product used for unknown indication
     Dosage: UNK
     Route: 048
     Dates: start: 20240517, end: 20240521
  2. AMLODIPINE\INDAPAMIDE\PERINDOPRIL [Suspect]
     Active Substance: AMLODIPINE\INDAPAMIDE\PERINDOPRIL
     Indication: Product used for unknown indication
     Dosage: 1 DF = 1 TABLETA = 8 MG PERINDOPRIL-TERT-BUTILAMINA STO ODGOVARA 6,68 MG PERINDOPRILA, 2,5 MG INDAPA
     Route: 048
     Dates: start: 20240517, end: 20240521
  3. DICLOFENAC [Suspect]
     Active Substance: DICLOFENAC
     Indication: Product used for unknown indication
     Dosage: UNK
     Route: 048
     Dates: start: 20240517, end: 20240521
  4. METFORMIN HYDROCHLORIDE [Suspect]
     Active Substance: METFORMIN HYDROCHLORIDE
     Indication: Product used for unknown indication
     Dosage: 1700.000MG QD
     Route: 048
     Dates: start: 20240517, end: 20240521
  5. ALPRAZOLAM [Suspect]
     Active Substance: ALPRAZOLAM
     Indication: Product used for unknown indication
     Dosage: 0.750MG QD
     Route: 048
     Dates: start: 20240517, end: 20240521
  6. ZOLPIDEM TARTRATE [Suspect]
     Active Substance: ZOLPIDEM TARTRATE
     Indication: Product used for unknown indication
     Dosage: 10.000MG QD
     Route: 048
     Dates: start: 20240517, end: 20240521
  7. PANTOPRAZOLE SODIUM [Suspect]
     Active Substance: PANTOPRAZOLE SODIUM
     Indication: Product used for unknown indication
     Dosage: 80.000MG QD
     Route: 048
     Dates: start: 20240517, end: 20240521
  8. QUETIAPINE [Suspect]
     Active Substance: QUETIAPINE
     Indication: Product used for unknown indication
     Dosage: 150.000MG QD
     Route: 048
     Dates: start: 20240517, end: 20240521
  9. RIVOTRIL [Suspect]
     Active Substance: CLONAZEPAM
     Indication: Product used for unknown indication
     Dosage: 8.000MG QD
     Route: 048
     Dates: start: 20240517, end: 20240521
  10. ZALDIAR [Suspect]
     Active Substance: ACETAMINOPHEN\TRAMADOL HYDROCHLORIDE
     Indication: Product used for unknown indication
     Dosage: 1 DF = 1 TABLETA = 37,5 MG TRAMADOLKLORIDA I 325 MG PARACETAMOLA
     Route: 048
     Dates: start: 20240517, end: 20240521

REACTIONS (4)
  - Suicide attempt [Unknown]
  - Intentional product use issue [Unknown]
  - Lethargy [Unknown]
  - Hypotension [Unknown]

NARRATIVE: CASE EVENT DATE: 20240517
